FAERS Safety Report 19589167 (Version 2)
Quarter: 2021Q3

REPORT INFORMATION
  Report Type: Spontaneous
  Country: GB (occurrence: GB)
  Receive Date: 20210721
  Receipt Date: 20210726
  Transmission Date: 20211014
  Serious: Yes (Death, Hospitalization, Other)
  Sender: FDA-Public Use
  Company Number: GB-MYLANLABS-2021M1042285

PATIENT
  Age: 83 Year
  Sex: Female

DRUGS (1)
  1. CLOZARIL [Suspect]
     Active Substance: CLOZAPINE
     Indication: SCHIZOPHRENIA
     Dosage: 50MG IN THE MORNING AND 250MG AT NIGHT
     Route: 048
     Dates: start: 20161117, end: 20210708

REACTIONS (6)
  - Urosepsis [Unknown]
  - Fall [Unknown]
  - White blood cell count decreased [Not Recovered/Not Resolved]
  - Cerebral haemorrhage [Fatal]
  - COVID-19 pneumonia [Recovering/Resolving]
  - Confusional state [Unknown]

NARRATIVE: CASE EVENT DATE: 20210709
